FAERS Safety Report 18211829 (Version 1)
Quarter: 2020Q3

REPORT INFORMATION
  Report Type: Spontaneous
  Country: US (occurrence: US)
  Receive Date: 20200831
  Receipt Date: 20200831
  Transmission Date: 20201103
  Serious: No
  Sender: FDA-Public Use
  Company Number: US-ELI_LILLY_AND_COMPANY-US202008002345

PATIENT
  Sex: Female

DRUGS (1)
  1. TRULICITY [Suspect]
     Active Substance: DULAGLUTIDE
     Indication: PRODUCT USED FOR UNKNOWN INDICATION
     Dosage: .75 MG, UNKNOWN
     Route: 058

REACTIONS (4)
  - Injection site bruising [Recovering/Resolving]
  - Accidental underdose [Unknown]
  - Injection site haemorrhage [Recovering/Resolving]
  - Product administered at inappropriate site [Recovering/Resolving]
